FAERS Safety Report 10062626 (Version 2)
Quarter: 2014Q2

REPORT INFORMATION
  Report Type: Spontaneous
  Country: US (occurrence: US)
  Receive Date: 20140407
  Receipt Date: 20140516
  Transmission Date: 20141212
  Serious: Yes (Death)
  Sender: FDA-Public Use
  Company Number: US-TEVA-472927USA

PATIENT
  Sex: Male

DRUGS (1)
  1. FENTORA [Suspect]
     Indication: CANCER PAIN
     Route: 002

REACTIONS (1)
  - Tracheal cancer [Fatal]
